FAERS Safety Report 10186437 (Version 1)
Quarter: 2014Q2

REPORT INFORMATION
  Report Type: Spontaneous
  Country: US (occurrence: US)
  Receive Date: 20140521
  Receipt Date: 20140521
  Transmission Date: 20141212
  Serious: No
  Sender: FDA-Public Use
  Company Number: US-ASTRAZENECA-2013SE81407

PATIENT
  Age: 57 Year
  Sex: Female
  Weight: 62.6 kg

DRUGS (10)
  1. PULMICORT FLEXHALER [Suspect]
     Indication: ASTHMA
     Route: 055
     Dates: start: 2013
  2. SINGULAIR [Concomitant]
     Indication: ASTHMA
     Dosage: NOT OBTAINED NR
  3. SINGULAIR [Concomitant]
     Indication: MULTIPLE ALLERGIES
     Dosage: NOT OBTAINED NR
  4. ZYRTEC [Concomitant]
     Indication: HYPERSENSITIVITY
     Dosage: NOT OBTAINED NR
  5. QUICK-ACTING INHALER [Concomitant]
     Dosage: NOT OBTAINED NR
     Route: 055
  6. LIVER EXTRACT [Concomitant]
     Indication: IRON DEFICIENCY ANAEMIA
     Dosage: NOT OBTAINED NR
  7. IRON [Concomitant]
     Indication: ANAEMIA
     Dosage: NOT OBTAINED NR
  8. SPIRONOLACTONE [Concomitant]
     Indication: FACE INJURY
     Dosage: NOT OBTAINED NR
  9. DOXYCYCLINE [Concomitant]
     Dosage: NOT OBTAINED NR
  10. FLUTICASONE [Concomitant]
     Dosage: ONE BID
     Route: 055

REACTIONS (6)
  - Sinus disorder [Not Recovered/Not Resolved]
  - Productive cough [Not Recovered/Not Resolved]
  - Asthma [Not Recovered/Not Resolved]
  - Dyspnoea [Unknown]
  - Cough [Not Recovered/Not Resolved]
  - Drug dose omission [Unknown]
